FAERS Safety Report 14604797 (Version 1)
Quarter: 2018Q1

REPORT INFORMATION
  Report Type: Spontaneous
  Country: ZA (occurrence: ZA)
  Receive Date: 20180306
  Receipt Date: 20180306
  Transmission Date: 20180509
  Serious: Yes (Other)
  Sender: FDA-Public Use
  Company Number: ZA-SA-2018SA046538

PATIENT
  Sex: Female

DRUGS (4)
  1. SALAZOPYRIN [Suspect]
     Active Substance: SULFASALAZINE
     Route: 065
     Dates: start: 20150224
  2. METHOTREXATE. [Suspect]
     Active Substance: METHOTREXATE
     Route: 065
     Dates: start: 20150812
  3. CHLOROQUINE. [Suspect]
     Active Substance: CHLOROQUINE
     Route: 065
     Dates: start: 20160609
  4. AZATHIOPRINE. [Suspect]
     Active Substance: AZATHIOPRINE
     Route: 065

REACTIONS (2)
  - Hepatic fibrosis [Unknown]
  - Arthralgia [Unknown]
